FAERS Safety Report 6196986-8 (Version None)
Quarter: 2009Q2

REPORT INFORMATION
  Report Type: 
  Country: None (occurrence: None)
  Receive Date: 20090520
  Receipt Date: 20090513
  Transmission Date: 20091009
  Serious: Yes (Other)
  Sender: FDA-Public Use
  Company Number: US-CELGENEUS-163-21880-09050928

PATIENT
  Sex: Female

DRUGS (6)
  1. REVLIMID [Suspect]
     Route: 048
     Dates: start: 20090201, end: 20090101
  2. REVLIMID [Suspect]
     Route: 048
     Dates: start: 20081001, end: 20081201
  3. REVLIMID [Suspect]
     Dosage: 20MG, 10MG, 20MG
     Route: 048
     Dates: start: 20080501, end: 20080701
  4. REVLIMID [Suspect]
     Route: 048
     Dates: start: 20080101, end: 20080301
  5. REVLIMID [Suspect]
     Route: 048
     Dates: start: 20070601, end: 20071201
  6. REVLIMID [Suspect]
     Route: 048
     Dates: start: 20060915, end: 20070501

REACTIONS (1)
  - TUBERCULOSIS [None]
